FAERS Safety Report 10446513 (Version 1)
Quarter: 2014Q3

REPORT INFORMATION
  Report Type: Spontaneous
  Country: US (occurrence: None)
  Receive Date: 20140910
  Receipt Date: 20140910
  Transmission Date: 20150326
  Serious: Yes (Death, Hospitalization)
  Sender: FDA-Public Use
  Company Number: None

PATIENT
  Age: 78 Year
  Sex: Male
  Weight: 79.38 kg

DRUGS (1)
  1. WARFARIN [Suspect]
     Active Substance: WARFARIN
     Indication: CORONARY ARTERY DISEASE
     Dosage: ONCE DAILYX 6 DAYS

REACTIONS (7)
  - Headache [None]
  - Road traffic accident [None]
  - Subdural haematoma [None]
  - Brain injury [None]
  - Coma [None]
  - Circulatory collapse [None]
  - Fall [None]

NARRATIVE: CASE EVENT DATE: 20140813
